FAERS Safety Report 19450559 (Version 1)
Quarter: 2021Q2

REPORT INFORMATION
  Report Type: Spontaneous
  Country: IN (occurrence: IN)
  Receive Date: 20210622
  Receipt Date: 20210622
  Transmission Date: 20210717
  Serious: Yes (Other)
  Sender: FDA-Public Use
  Company Number: IN-PFIZER INC-2021674209

PATIENT
  Age: 66 Year
  Sex: Female

DRUGS (5)
  1. PALBACE [Suspect]
     Active Substance: PALBOCICLIB
     Indication: BREAST CANCER METASTATIC
     Dosage: UNK
     Dates: start: 201706, end: 201805
  2. PALBACE [Suspect]
     Active Substance: PALBOCICLIB
     Dosage: 125 MG, 1X/DAY
     Route: 048
     Dates: start: 20190724
  3. PALBACE [Suspect]
     Active Substance: PALBOCICLIB
     Dosage: UNK
     Dates: start: 201905
  4. PALBACE [Suspect]
     Active Substance: PALBOCICLIB
     Dosage: UNK
     Dates: start: 201807, end: 201901
  5. LETROZ [Concomitant]
     Indication: BREAST CANCER METASTATIC
     Dosage: UNK
     Dates: start: 201706

REACTIONS (4)
  - Neoplasm progression [Unknown]
  - Neutrophil count decreased [Unknown]
  - Platelet count decreased [Unknown]
  - Cataract [Unknown]
